FAERS Safety Report 7378289-9 (Version None)
Quarter: 2011Q1

REPORT INFORMATION
  Report Type: 
  Country: None (occurrence: None)
  Receive Date: 20110317
  Receipt Date: 20110311
  Transmission Date: 20110831
  Serious: Yes (Hospitalization)
  Sender: FDA-Public Use
  Company Number: US-004900

PATIENT
  Sex: Male
  Weight: 104.3273 kg

DRUGS (2)
  1. CCUPRIL [Concomitant]
  2. PROSED/DS (NOT SPECIFIED) [Suspect]
     Indication: URINARY TRACT INFECTION
     Dosage: (1 TABLET DAILY ORAL ORAL)
     Route: 048

REACTIONS (3)
  - HEPATIC CIRRHOSIS [None]
  - CHOLELITHIASIS [None]
  - CHRONIC HEPATITIS [None]
